FAERS Safety Report 7771151-9 (Version None)
Quarter: 2011Q3

REPORT INFORMATION
  Report Type: 
  Country: None (occurrence: None)
  Receive Date: 20110922
  Receipt Date: 20100830
  Transmission Date: 20111222
  Serious: No
  Sender: FDA-Public Use
  Company Number: US-ASTRAZENECA-2007UW27636

PATIENT
  Age: 46 Year
  Sex: Female
  Weight: 64.4 kg

DRUGS (8)
  1. SEROQUEL [Suspect]
     Dosage: 300 TO 600 MG
     Route: 048
     Dates: start: 20031107, end: 20070125
  2. SEROQUEL [Suspect]
     Indication: BIPOLAR DISORDER
     Route: 048
     Dates: start: 20030301, end: 20040401
  3. SEROQUEL [Suspect]
     Indication: DEPRESSION
     Route: 048
     Dates: start: 20030301, end: 20040401
  4. SEROQUEL [Suspect]
     Dosage: 300 TO 600 MG
     Route: 048
     Dates: start: 20031107, end: 20070125
  5. RISPERDAL [Concomitant]
     Indication: DEPRESSION
     Dates: start: 20080101
  6. SEROQUEL [Suspect]
     Dosage: 300 TO 600 MG
     Route: 048
     Dates: start: 20031107, end: 20070125
  7. ABILIFY [Concomitant]
     Dates: start: 19980101, end: 20010101
  8. SEROQUEL [Suspect]
     Indication: ANXIETY
     Route: 048
     Dates: start: 20030301, end: 20040401

REACTIONS (5)
  - HYPERGLYCAEMIA [None]
  - DIABETES MELLITUS [None]
  - TYPE 2 DIABETES MELLITUS [None]
  - WEIGHT INCREASED [None]
  - DIABETIC COMPLICATION [None]
